FAERS Safety Report 23945877 (Version 1)
Quarter: 2024Q2

REPORT INFORMATION
  Report Type: Other
  Country: CA (occurrence: CA)
  Receive Date: 20240606
  Receipt Date: 20240606
  Transmission Date: 20240716
  Serious: Yes (Death)
  Sender: FDA-Public Use
  Company Number: CA-Nuvo Pharmaceuticals Inc-2157840

PATIENT
  Age: 37 Year
  Sex: Male

DRUGS (11)
  1. DIAZEPAM [Suspect]
     Active Substance: DIAZEPAM
     Indication: Product used for unknown indication
     Route: 065
  2. AMPHETAMINE SULFATE [Suspect]
     Active Substance: AMPHETAMINE SULFATE
     Route: 065
  3. DEPROPIONYLFENTANYL [Suspect]
     Active Substance: DEPROPIONYLFENTANYL
     Route: 065
  4. 6.BETA.-NALTREXOL [Suspect]
     Active Substance: 6.BETA.-NALTREXOL
     Route: 065
  5. NALTREXONE HYDROCHLORIDE [Suspect]
     Active Substance: NALTREXONE HYDROCHLORIDE
     Route: 065
  6. NORFENTANYL [Suspect]
     Active Substance: NORFENTANYL
     Route: 065
  7. FENTANYL [Suspect]
     Active Substance: FENTANYL\FENTANYL CITRATE
     Route: 065
  8. METHAMPHETAMINE HYDROCHLORIDE [Suspect]
     Active Substance: METHAMPHETAMINE HYDROCHLORIDE
     Route: 065
  9. NALOXONE HYDROCHLORIDE [Suspect]
     Active Substance: NALOXONE HYDROCHLORIDE
     Route: 065
  10. CAFFEINE [Suspect]
     Active Substance: CAFFEINE
     Route: 065
  11. BROMAZOLAM [Suspect]
     Active Substance: BROMAZOLAM
     Route: 065

REACTIONS (1)
  - Toxicity to various agents [Fatal]
